FAERS Safety Report 24328839 (Version 1)
Quarter: 2024Q3

REPORT INFORMATION
  Report Type: Spontaneous
  Country: US (occurrence: None)
  Receive Date: 20240917
  Receipt Date: 20240917
  Transmission Date: 20241017
  Serious: Yes (Other)
  Sender: ASTRAZENECA
  Company Number: 2024A210803

PATIENT
  Sex: Female

DRUGS (8)
  1. OLAPARIB [Suspect]
     Active Substance: OLAPARIB
     Route: 048
  2. CARBOPLATIN [Suspect]
     Active Substance: CARBOPLATIN
  3. NIRAPARIB [Suspect]
     Active Substance: NIRAPARIB
  4. DOXIL [Suspect]
     Active Substance: DOXORUBICIN HYDROCHLORIDE
  5. ELAHERE [Suspect]
     Active Substance: MIRVETUXIMAB SORAVTANSINE-GYNX
  6. PALBOCICLIB [Suspect]
     Active Substance: PALBOCICLIB
  7. TAXOL [Suspect]
     Active Substance: PACLITAXEL
  8. BEVACIZUMAB [Suspect]
     Active Substance: BEVACIZUMAB

REACTIONS (1)
  - Malignant neoplasm progression [Unknown]
